FAERS Safety Report 16240351 (Version 1)
Quarter: 2019Q2

REPORT INFORMATION
  Report Type: Spontaneous
  Country: FR (occurrence: FR)
  Receive Date: 20190425
  Receipt Date: 20190425
  Transmission Date: 20190711
  Serious: Yes (Hospitalization, Other)
  Sender: FDA-Public Use
  Company Number: FR-CASPER PHARMA LLC-2019CAS000223

PATIENT
  Age: 37 Year
  Sex: Male

DRUGS (1)
  1. AZATHIOPRINE. [Suspect]
     Active Substance: AZATHIOPRINE
     Indication: MULTIPLE SCLEROSIS
     Dosage: 100-150 MILLIGRAM
     Route: 065
     Dates: start: 1981

REACTIONS (3)
  - Product use in unapproved indication [Unknown]
  - Fibrosis [Unknown]
  - Nodular regenerative hyperplasia [Unknown]
